FAERS Safety Report 10168416 (Version 1)
Quarter: 2014Q2

REPORT INFORMATION
  Report Type: Spontaneous
  Country: US (occurrence: US)
  Receive Date: 20140513
  Receipt Date: 20140513
  Transmission Date: 20141212
  Serious: Yes (Other)
  Sender: FDA-Public Use
  Company Number: US-BEH-2014042394

PATIENT
  Sex: Male
  Weight: 85 kg

DRUGS (11)
  1. BERINERT [Suspect]
     Indication: HEREDITARY ANGIOEDEMA
     Route: 042
  2. KALIBITOR [Concomitant]
  3. HYDROXYZINE HCL [Concomitant]
  4. ZYRTEC [Concomitant]
  5. DIPHENHYDRAMINE HYDROCHLORIDE [Concomitant]
  6. HEPARIN [Concomitant]
  7. SODIUM CHLORIDE [Concomitant]
  8. EPI-PEN [Concomitant]
  9. PREDNISONE [Concomitant]
  10. ZANTAC [Concomitant]
  11. BENADRYL [Concomitant]

REACTIONS (2)
  - Hereditary angioedema [Unknown]
  - Activities of daily living impaired [Unknown]
